FAERS Safety Report 8976406 (Version 1)
Quarter: 2012Q4

REPORT INFORMATION
  Report Type: 
  Country: AT (occurrence: AT)
  Receive Date: 20121220
  Receipt Date: 20121220
  Transmission Date: 20130627
  Serious: Yes (Hospitalization)
  Sender: FDA-Public Use
  Company Number: AT-GE HEALTHCARE MEDICAL DIAGNOSTICS-OMPQ-GE-1212S-1339

PATIENT
  Age: 75 Year
  Sex: Male

DRUGS (2)
  1. ACCUPAQUE [Suspect]
     Indication: NEOPLASM PROSTATE
     Route: 042
     Dates: start: 20121212, end: 20121212
  2. ACCUPAQUE [Suspect]
     Indication: DIAGNOSTIC PROCEDURE

REACTIONS (2)
  - Urticaria [Recovered/Resolved]
  - Rash generalised [Recovered/Resolved]
